FAERS Safety Report 6470417-2 (Version None)
Quarter: 2009Q4

REPORT INFORMATION
  Report Type: 
  Country: None (occurrence: None)
  Receive Date: 20091203
  Receipt Date: 20091123
  Transmission Date: 20100525
  Serious: Yes (Other)
  Sender: FDA-Public Use
  Company Number: DE-JNJFOC-20071106085

PATIENT
  Age: 68 Year
  Sex: Female

DRUGS (2)
  1. INFLIXIMAB [Suspect]
     Dosage: 4TH INFUSION, DATE UNSPECIFIED
     Route: 042
  2. INFLIXIMAB [Suspect]
     Indication: WEBER-CHRISTIAN DISEASE
     Dosage: INFUSIONS 1-3, DATES UNSPECIFIED
     Route: 042

REACTIONS (2)
  - HISTIOCYTIC NECROTISING LYMPHADENITIS [None]
  - VASCULITIS NECROTISING [None]
